FAERS Safety Report 9238755 (Version 3)
Quarter: 2014Q1

REPORT INFORMATION
  Report Type: Spontaneous
  Country: JP (occurrence: JP)
  Receive Date: 20130418
  Receipt Date: 20140219
  Transmission Date: 20141002
  Serious: Yes (Other)
  Sender: FDA-Public Use
  Company Number: PHHY2013JP013025

PATIENT
  Age: 66 Year
  Sex: Male
  Weight: 54 kg

DRUGS (6)
  1. TASIGNA [Suspect]
     Indication: CHRONIC MYELOID LEUKAEMIA
     Dosage: 800 MG, DAILY
     Route: 048
     Dates: start: 20090326
  2. TASIGNA [Suspect]
     Dosage: 400 MG, DAILY
     Route: 048
     Dates: start: 20130124
  3. MAINTATE [Concomitant]
     Dosage: 5 MG, QD
     Route: 048
     Dates: start: 20120927
  4. HYPEN [Concomitant]
     Indication: BACK PAIN
     Dosage: 200 MG, QD
     Route: 048
     Dates: start: 20110106, end: 20121129
  5. BLOPRESS [Concomitant]
     Indication: HYPERTENSION
     Dosage: 8 MG, QD
     Route: 048
     Dates: start: 20121025, end: 20121129
  6. VOLTAREN [Concomitant]
     Dosage: 30 MG
     Dates: start: 20120927

REACTIONS (1)
  - Refractory anaemia with an excess of blasts [Recovering/Resolving]
